FAERS Safety Report 10477630 (Version 2)
Quarter: 2014Q4

REPORT INFORMATION
  Report Type: Spontaneous
  Country: JP (occurrence: JP)
  Receive Date: 20140926
  Receipt Date: 20141023
  Transmission Date: 20150528
  Serious: Yes (Death, Life-Threatening)
  Sender: FDA-Public Use
  Company Number: JP-009507513-1409JPN009253

PATIENT
  Age: 44 Year
  Sex: Male
  Weight: 65 kg

DRUGS (16)
  1. CANCIDAS [Suspect]
     Active Substance: CASPOFUNGIN ACETATE
     Indication: FEBRILE NEUTROPENIA
     Dosage: 70 MG, QD
     Route: 041
     Dates: start: 20140628, end: 20140628
  2. URSO [Concomitant]
     Active Substance: URSODIOL
     Indication: PROPHYLAXIS
     Dosage: 200 MG, TID
     Route: 048
     Dates: start: 20140611, end: 20140818
  3. CELLCEPT [Concomitant]
     Active Substance: MYCOPHENOLATE MOFETIL\MYCOPHENOLATE MOFETIL HYDROCHLORIDE
     Indication: PROPHYLAXIS
     Dosage: 750 MG, BID
     Route: 048
     Dates: start: 20140620, end: 20140812
  4. AMBISOME [Concomitant]
     Active Substance: AMPHOTERICIN B
     Indication: FEBRILE NEUTROPENIA
     Dosage: 3.2 DOSAGE FORM, QD
     Route: 041
     Dates: start: 20140801, end: 20140806
  5. FLUCONAZOLE. [Concomitant]
     Active Substance: FLUCONAZOLE
     Indication: FEBRILE NEUTROPENIA
     Dosage: 200 MG, QD
     Route: 048
     Dates: start: 20140505, end: 20140625
  6. FLUITRAN [Concomitant]
     Active Substance: TRICHLORMETHIAZIDE
     Indication: HYPERTENSION
     Dosage: 1 MG, QD
     Route: 048
     Dates: start: 20140328, end: 20140802
  7. EBUTOL [Concomitant]
     Active Substance: ETHAMBUTOL HYDROCHLORIDE
     Indication: ATYPICAL MYCOBACTERIAL INFECTION
     Dosage: 750 MG, QD
     Route: 048
     Dates: start: 20140503, end: 20140701
  8. PROGRAF [Concomitant]
     Active Substance: TACROLIMUS\TACROLIMUS ANHYDROUS
     Indication: PROPHYLAXIS
     Dosage: 0.3 MG/KG, QD
     Route: 051
     Dates: start: 20140618, end: 20140817
  9. CANCIDAS [Suspect]
     Active Substance: CASPOFUNGIN ACETATE
     Indication: FEBRILE NEUTROPENIA
     Dosage: 50 MG, QD
     Route: 041
     Dates: start: 20140629, end: 20140801
  10. ZOVIRAX [Concomitant]
     Active Substance: ACYCLOVIR
     Indication: INFECTION PROPHYLAXIS
     Dosage: 200 MG, 5 TIMES A DAY
     Route: 048
     Dates: start: 20140611, end: 20140818
  11. ADALAT [Concomitant]
     Active Substance: NIFEDIPINE
     Indication: HYPERTENSION
     Dosage: 20 MG, BID
     Route: 048
     Dates: start: 20140720, end: 20140802
  12. RIFADIN [Concomitant]
     Active Substance: RIFAMPIN
     Indication: ATYPICAL MYCOBACTERIAL INFECTION
     Dosage: 450 MG, QD
     Route: 048
     Dates: start: 20140503, end: 20140701
  13. ASPARTE POTASSIUM [Concomitant]
     Indication: HYPOKALAEMIA
     Dosage: 20 ML, AS OCCASION ARISES/ DAY
     Route: 051
     Dates: start: 20140622, end: 20140731
  14. BLOPRESS [Concomitant]
     Active Substance: CANDESARTAN CILEXETIL
     Indication: HYPERTENSION
     Dosage: 8 MG, QD
     Route: 048
     Dates: start: 20140625, end: 20140802
  15. BAKTAR [Concomitant]
     Active Substance: SULFAMETHOXAZOLE\TRIMETHOPRIM
     Indication: PROPHYLAXIS
     Dosage: 0.5 DOSAGE FORM, QD
     Route: 048
     Dates: start: 20140724, end: 20140802
  16. MAGNESIUM SULFATE. [Concomitant]
     Active Substance: MAGNESIUM SULFATE
     Indication: HYPOMAGNESAEMIA
     Dosage: 20 ML, QD
     Route: 051
     Dates: start: 20140618, end: 20140817

REACTIONS (3)
  - White blood cell count increased [Not Recovered/Not Resolved]
  - Hepatic enzyme increased [Fatal]
  - Pneumonia [Fatal]

NARRATIVE: CASE EVENT DATE: 20140811
